FAERS Safety Report 6517632-7 (Version None)
Quarter: 2009Q4

REPORT INFORMATION
  Report Type: 
  Country: None (occurrence: None)
  Receive Date: 20091224
  Receipt Date: 20091218
  Transmission Date: 20100525
  Serious: Yes (Hospitalization)
  Sender: FDA-Public Use
  Company Number: PHHO2009BR11639

PATIENT
  Sex: Male
  Weight: 85.3 kg

DRUGS (2)
  1. NEORAL [Suspect]
     Indication: RENAL TRANSPLANT
     Dosage: OPEN LABEL
     Route: 048
     Dates: start: 20090813
  2. CERTICAN [Suspect]
     Indication: RENAL TRANSPLANT
     Dosage: OPEN LABEL
     Route: 048
     Dates: start: 20090813

REACTIONS (2)
  - DRUG INEFFECTIVE [None]
  - TRANSPLANT REJECTION [None]
